FAERS Safety Report 4335946-6 (Version None)
Quarter: 2004Q2

REPORT INFORMATION
  Report Type: 
  Country: None (occurrence: None)
  Receive Date: 20040406
  Receipt Date: 20040322
  Transmission Date: 20050107
  Serious: Yes (Death, Hospitalization, Other)
  Sender: FDA-Public Use
  Company Number: 04-092-0084

PATIENT
  Age: 57 Year
  Sex: Male
  Weight: 69 kg

DRUGS (1)
  1. MITOMYCIN [Suspect]
     Indication: NON-SMALL CELL LUNG CANCER
     Dosage: 8 MG/M2

REACTIONS (6)
  - ABDOMINAL PAIN UPPER [None]
  - DYSPNOEA [None]
  - PAIN [None]
  - RESPIRATORY TRACT INFECTION [None]
  - SEPSIS [None]
  - SUPRAVENTRICULAR TACHYCARDIA [None]
